FAERS Safety Report 5988570-3 (Version None)
Quarter: 2008Q4

REPORT INFORMATION
  Report Type: 
  Country: None (occurrence: None)
  Receive Date: 20081210
  Receipt Date: 20081201
  Transmission Date: 20090506
  Serious: Yes (Other)
  Sender: FDA-Public Use
  Company Number: US-ROCHE-600289

PATIENT
  Sex: Female
  Weight: 88.9 kg

DRUGS (10)
  1. XELODA [Suspect]
     Indication: BREAST CANCER
     Route: 048
  2. XELODA [Suspect]
     Dosage: LOWERED DOSE
     Route: 048
  3. DIOVAN HCT [Concomitant]
     Route: 048
  4. NEXIUM [Concomitant]
     Route: 048
  5. SINGULAIR [Concomitant]
     Route: 048
  6. GLUCOPHAGE XR [Concomitant]
     Route: 048
  7. SYNTHROID [Concomitant]
     Route: 048
  8. FOLIC ACID [Concomitant]
     Route: 048
  9. ASPIRIN [Concomitant]
     Route: 048
  10. VIT D [Concomitant]
     Route: 048

REACTIONS (2)
  - ADVERSE REACTION [None]
  - PANCREATITIS [None]
